FAERS Safety Report 20369776 (Version 8)
Quarter: 2024Q2

REPORT INFORMATION
  Report Type: Spontaneous
  Country: US (occurrence: US)
  Receive Date: 20220124
  Receipt Date: 20240627
  Transmission Date: 20240715
  Serious: No
  Sender: FDA-Public Use
  Company Number: US-THERATECHNOLOGIES INC.-2022-THE-IBA-000007

PATIENT

DRUGS (1)
  1. TROGARZO [Suspect]
     Active Substance: IBALIZUMAB-UIYK
     Indication: HIV infection
     Dosage: 800MG EVERY 2 WEEKS
     Route: 042
     Dates: start: 202112

REACTIONS (19)
  - Pyrexia [Unknown]
  - Pain in extremity [Unknown]
  - Arthralgia [Unknown]
  - Cough [Unknown]
  - Neuralgia [Unknown]
  - Condition aggravated [Unknown]
  - Weight increased [Unknown]
  - Eczema [Unknown]
  - Skin depigmentation [Unknown]
  - Skin exfoliation [Unknown]
  - Dry skin [Unknown]
  - Therapy interrupted [Unknown]
  - Weight increased [Unknown]
  - Abdominal distension [Unknown]
  - Skin reaction [Unknown]
  - Dyspnoea [Unknown]
  - Diarrhoea [Unknown]
  - Nausea [Unknown]
  - Rash [Recovered/Resolved]

NARRATIVE: CASE EVENT DATE: 20220105
